FAERS Safety Report 21738828 (Version 1)
Quarter: 2022Q4

REPORT INFORMATION
  Report Type: Spontaneous
  Country: GB (occurrence: GB)
  Receive Date: 20221216
  Receipt Date: 20221216
  Transmission Date: 20230112
  Serious: Yes (Life-Threatening, Other)
  Sender: FDA-Public Use
  Company Number: None

PATIENT
  Age: 18 Year
  Sex: Female
  Weight: 49 kg

DRUGS (1)
  1. ESCITALOPRAM [Interacting]
     Active Substance: ESCITALOPRAM OXALATE
     Indication: Depression
     Dosage: 20 MG IN THE MORNING
     Route: 065

REACTIONS (11)
  - Psychotic disorder [Recovered/Resolved with Sequelae]
  - Circulatory collapse [Unknown]
  - Loss of consciousness [Unknown]
  - Hallucinations, mixed [Unknown]
  - Paranoia [Unknown]
  - Emotional distress [Unknown]
  - Delusional disorder, unspecified type [Unknown]
  - Anxiety [Unknown]
  - Alcohol interaction [Unknown]
  - Condition aggravated [Unknown]
  - Mental impairment [Unknown]
